FAERS Safety Report 5203504-7 (Version None)
Quarter: 2007Q1

REPORT INFORMATION
  Report Type: 
  Country: None (occurrence: None)
  Receive Date: 20070110
  Receipt Date: 20070105
  Transmission Date: 20070707
  Serious: Yes (Other)
  Sender: FDA-Public Use
  Company Number: 2006AC02356

PATIENT
  Age: 29 Year
  Sex: Female

DRUGS (6)
  1. NAROPIN [Suspect]
     Indication: LABOUR PAIN
     Route: 008
  2. NAROPIN [Suspect]
     Route: 008
  3. FENTANYL CITRATE [Suspect]
     Indication: LABOUR PAIN
     Route: 008
  4. FENTANYL CITRATE [Suspect]
     Route: 008
  5. LIDOCAINE W/ EPINEPHRINE [Concomitant]
     Indication: CATHETER PLACEMENT
  6. KEFALEXINE [Concomitant]
     Indication: ENDOMETRITIS DECIDUAL

REACTIONS (5)
  - ABDOMINAL PAIN [None]
  - BODY TEMPERATURE INCREASED [None]
  - DEAFNESS NEUROSENSORY [None]
  - ENDOMETRITIS [None]
  - HEADACHE [None]
